FAERS Safety Report 8255170-4 (Version None)
Quarter: 2012Q1

REPORT INFORMATION
  Report Type: 
  Country: None (occurrence: None)
  Receive Date: 20120322
  Receipt Date: 20120223
  Transmission Date: 20120608
  Serious: Yes (Hospitalization)
  Sender: FDA-Public Use
  Company Number: UTC-015404

PATIENT
  Age: 56 Year
  Sex: Female
  Weight: 105.9 kg

DRUGS (4)
  1. REVATIO [Suspect]
     Indication: PRODUCT USED FOR UNKNOWN INDICATION
  2. COUMADIN [Concomitant]
  3. DIURETICS (DIURETICS) [Concomitant]
  4. TYVASO [Suspect]
     Indication: PULMONARY ARTERIAL HYPERTENSION
     Dosage: 6-54 MICROGRAMS (4 IN 1 D), INHALATION
     Route: 055
     Dates: start: 20110329

REACTIONS (1)
  - HYPERGLYCAEMIA [None]
